FAERS Safety Report 9477047 (Version 1)
Quarter: 2013Q3

REPORT INFORMATION
  Report Type: Spontaneous
  Country: US (occurrence: US)
  Receive Date: 20130826
  Receipt Date: 20130826
  Transmission Date: 20140515
  Serious: Yes (Other)
  Sender: FDA-Public Use
  Company Number: US-BAYER-2013-102517

PATIENT
  Age: 36 Year
  Sex: Female

DRUGS (4)
  1. YASMIN [Suspect]
  2. SODIUM CHLORIDE [Concomitant]
     Dosage: 0.9 %, UNK
     Dates: start: 20080506
  3. PITOCIN [Concomitant]
  4. PRENATAL VITAMINS [Concomitant]

REACTIONS (1)
  - Phlebitis superficial [None]
